FAERS Safety Report 10755594 (Version 1)
Quarter: 2015Q1

REPORT INFORMATION
  Report Type: Spontaneous
  Country: US (occurrence: None)
  Receive Date: 20150123
  Receipt Date: 20150123
  Transmission Date: 20150721
  Serious: Yes (Hospitalization)
  Sender: FDA-Public Use
  Company Number: 2014TUS006761

PATIENT
  Age: 24 Year
  Sex: Male
  Weight: 193 kg

DRUGS (4)
  1. IMURAN/00001501/ (AZATHIOPRINE) [Concomitant]
  2. ENTYVIO [Suspect]
     Active Substance: VEDOLIZUMAB
     Indication: CROHN^S DISEASE
     Dosage: 300 MG, WEEK ZERO, FIRST DOSE, INTRAVENOUS
     Route: 042
     Dates: start: 20140725, end: 20140725
  3. SOLUMEDROL (METHYPREDNISOLONE SODIUM SUCCINATE) [Concomitant]
  4. LISDEXAMFETAMINE [Concomitant]
     Active Substance: LISDEXAMFETAMINE

REACTIONS (7)
  - Retching [None]
  - Condition aggravated [None]
  - Throat irritation [None]
  - Aphthous stomatitis [None]
  - Oral fungal infection [None]
  - Crohn^s disease [None]
  - Throat tightness [None]

NARRATIVE: CASE EVENT DATE: 20140725
